FAERS Safety Report 13606826 (Version 3)
Quarter: 2018Q2

REPORT INFORMATION
  Report Type: Spontaneous
  Country: US (occurrence: US)
  Receive Date: 20170602
  Receipt Date: 20180613
  Transmission Date: 20180711
  Serious: Yes (Other)
  Sender: FDA-Public Use
  Company Number: US-009507513-1705USA013757

PATIENT
  Age: 67 Year
  Sex: Male

DRUGS (2)
  1. DULERA [Suspect]
     Active Substance: FORMOTEROL FUMARATE DIHYDRATE\MOMETASONE FUROATE
     Indication: BRONCHITIS
     Dosage: 200/10 MICROGRAM PER ACTUATION
     Route: 055
     Dates: start: 20170317, end: 2017
  2. MK-0000 [Suspect]
     Active Substance: INVESTIGATIONAL PRODUCT
     Indication: BRONCHITIS
     Dosage: UNK
     Route: 065
     Dates: start: 20170317

REACTIONS (19)
  - Penile size reduced [Not Recovered/Not Resolved]
  - Product use in unapproved indication [Unknown]
  - Pollakiuria [Not Recovered/Not Resolved]
  - Genital disorder male [Not Recovered/Not Resolved]
  - Drug ineffective [Unknown]
  - Urinary incontinence [Not Recovered/Not Resolved]
  - Poor quality sleep [Not Recovered/Not Resolved]
  - Pneumonia [Unknown]
  - Dysuria [Not Recovered/Not Resolved]
  - Adverse drug reaction [Unknown]
  - Adverse event [Not Recovered/Not Resolved]
  - Nervous system disorder [Not Recovered/Not Resolved]
  - Infection [Unknown]
  - Urinary tract disorder [Not Recovered/Not Resolved]
  - Dyspnoea [Unknown]
  - Functional gastrointestinal disorder [Not Recovered/Not Resolved]
  - Prostatic specific antigen increased [Recovered/Resolved]
  - Anal incontinence [Not Recovered/Not Resolved]
  - Prostatic disorder [Not Recovered/Not Resolved]

NARRATIVE: CASE EVENT DATE: 2017
